FAERS Safety Report 8964408 (Version 1)
Quarter: 2012Q4

REPORT INFORMATION
  Report Type: 
  Country: US (occurrence: US)
  Receive Date: 20121214
  Receipt Date: 20121214
  Transmission Date: 20130627
  Serious: No
  Sender: FDA-Public Use
  Company Number: US-GLAXOSMITHKLINE-A0983029A

PATIENT

DRUGS (2)
  1. AVODART [Suspect]
     Indication: PROSTATOMEGALY
     Dosage: 1CAP Per day
     Route: 048
     Dates: start: 2010, end: 201201
  2. OTHER MEDICATIONS [Concomitant]

REACTIONS (2)
  - Libido decreased [Unknown]
  - Erectile dysfunction [Unknown]
